FAERS Safety Report 13744046 (Version 2)
Quarter: 2017Q3

REPORT INFORMATION
  Report Type: Spontaneous
  Country: US (occurrence: US)
  Receive Date: 20170712
  Receipt Date: 20170809
  Transmission Date: 20171127
  Serious: Yes (Other)
  Sender: FDA-Public Use
  Company Number: US-ROCHE-1962225

PATIENT
  Age: 90 Year
  Sex: Female

DRUGS (2)
  1. LUCENTIS [Suspect]
     Active Substance: RANIBIZUMAB
     Indication: CYSTOID MACULAR OEDEMA
     Route: 065
     Dates: start: 20170505
  2. LUCENTIS [Suspect]
     Active Substance: RANIBIZUMAB
     Indication: NEOVASCULAR AGE-RELATED MACULAR DEGENERATION
     Dosage: INJECTIONS IN BOTH EYES
     Route: 050
     Dates: start: 20131212

REACTIONS (3)
  - Suspected transmission of an infectious agent via product [Unknown]
  - Eye infection [Unknown]
  - Panophthalmitis [Unknown]

NARRATIVE: CASE EVENT DATE: 20170510
